FAERS Safety Report 20693378 (Version 2)
Quarter: 2022Q2

REPORT INFORMATION
  Report Type: Spontaneous
  Country: JP (occurrence: JP)
  Receive Date: 20220410
  Receipt Date: 20220414
  Transmission Date: 20220721
  Serious: Yes (Hospitalization)
  Sender: FDA-Public Use
  Company Number: JP-NOVARTISPH-NVSJ2022JP005687

PATIENT
  Age: 82 Year
  Sex: Female

DRUGS (5)
  1. ENTRESTO [Suspect]
     Active Substance: SACUBITRIL\VALSARTAN
     Indication: Cardiac failure chronic
     Dosage: 50 MG, BID
     Route: 048
     Dates: start: 202201
  2. LASIX [Concomitant]
     Active Substance: FUROSEMIDE
     Indication: Product used for unknown indication
     Dosage: 50-80MG (ADJUST ACCORDING TO THE CONDITION)
     Route: 065
  3. SPIRONOLACTONE [Concomitant]
     Active Substance: SPIRONOLACTONE
     Indication: Product used for unknown indication
     Dosage: 12.5 MG, QOD
     Route: 065
  4. BENZBROMARONE [Concomitant]
     Active Substance: BENZBROMARONE
     Indication: Product used for unknown indication
     Dosage: 50 MG, QD
     Route: 065
  5. BISOPROLOL FUMARATE [Concomitant]
     Active Substance: BISOPROLOL FUMARATE
     Indication: Product used for unknown indication
     Dosage: 0.625 MG, QD
     Route: 065

REACTIONS (2)
  - Dyspnoea [Unknown]
  - Oedema [Unknown]

NARRATIVE: CASE EVENT DATE: 20220301
